FAERS Safety Report 7509629-5 (Version None)
Quarter: 2011Q2

REPORT INFORMATION
  Report Type: 
  Country: None (occurrence: None)
  Receive Date: 20110527
  Receipt Date: 20110518
  Transmission Date: 20111010
  Serious: Yes (Other)
  Sender: FDA-Public Use
  Company Number: US-ASTRAZENECA-2011SE30355

PATIENT
  Age: 927 Month
  Sex: Female
  Weight: 63.5 kg

DRUGS (2)
  1. PRILOSEC [Suspect]
     Indication: GASTRITIS
     Route: 048
     Dates: start: 20110201, end: 20110518
  2. SINGULAIR [Concomitant]

REACTIONS (2)
  - FATIGUE [None]
  - VENTRICULAR EXTRASYSTOLES [None]
